FAERS Safety Report 11688051 (Version 2)
Quarter: 2015Q4

REPORT INFORMATION
  Report Type: Spontaneous
  Country: US (occurrence: US)
  Receive Date: 20151030
  Receipt Date: 20151106
  Transmission Date: 20160304
  Serious: No
  Sender: FDA-Public Use
  Company Number: US-PFIZER INC-2015351133

PATIENT
  Sex: Female

DRUGS (1)
  1. ADVIL [Suspect]
     Active Substance: IBUPROFEN
     Indication: MYALGIA
     Dosage: 200 MG, UNK

REACTIONS (4)
  - Erythema [Unknown]
  - Rash papular [Unknown]
  - Herpes zoster [Recovering/Resolving]
  - Rash erythematous [Unknown]

NARRATIVE: CASE EVENT DATE: 20151015
